FAERS Safety Report 10220233 (Version 1)
Quarter: 2014Q2

REPORT INFORMATION
  Report Type: Spontaneous
  Country: US (occurrence: US)
  Receive Date: 20140606
  Receipt Date: 20140606
  Transmission Date: 20141212
  Serious: Yes (Death, Other)
  Sender: FDA-Public Use
  Company Number: US-009507513-1406USA000829

PATIENT
  Sex: Male

DRUGS (3)
  1. SINEMET [Suspect]
     Indication: PARKINSON^S DISEASE
     Dosage: 10 TABLETS PER DAY
     Route: 048
     Dates: start: 201309, end: 201309
  2. SINEMET [Suspect]
     Dosage: FOUR PILLS A DAY
     Dates: start: 2013
  3. COMTAN [Concomitant]
     Dosage: UNK
     Route: 048
     Dates: end: 2013

REACTIONS (3)
  - Myocardial infarction [Fatal]
  - Prescribed overdose [Unknown]
  - Off label use [Unknown]
